FAERS Safety Report 9885526 (Version 2)
Quarter: 2014Q1

REPORT INFORMATION
  Report Type: Spontaneous
  Country: US (occurrence: US)
  Receive Date: 20140210
  Receipt Date: 20140214
  Transmission Date: 20141002
  Serious: Yes (Death, Other)
  Sender: FDA-Public Use
  Company Number: US-009507513-1402USA003969

PATIENT
  Sex: Female

DRUGS (1)
  1. EMEND [Suspect]
     Dosage: UNK
     Route: 042
     Dates: end: 2013

REACTIONS (1)
  - Pancreatic carcinoma [Fatal]
